FAERS Safety Report 5135760-8 (Version None)
Quarter: 2006Q4

REPORT INFORMATION
  Report Type: 
  Country: None (occurrence: None)
  Receive Date: 20061020
  Receipt Date: 20061005
  Transmission Date: 20070319
  Serious: Yes (Other)
  Sender: FDA-Public Use
  Company Number: US018425

PATIENT
  Age: 43 Year
  Sex: Female

DRUGS (2)
  1. ACTIQ [Suspect]
     Indication: MIGRAINE
     Dosage: 800 UG QD BUCCAL
     Route: 002
     Dates: start: 20060602, end: 20060602
  2. ACTIQ [Suspect]
     Indication: PAIN
     Dosage: 800 UG QD BUCCAL
     Route: 002
     Dates: start: 20060602, end: 20060602

REACTIONS (4)
  - LOSS OF CONSCIOUSNESS [None]
  - OVERDOSE [None]
  - OXYGEN SATURATION DECREASED [None]
  - SOMNOLENCE [None]
